FAERS Safety Report 10507818 (Version 3)
Quarter: 2019Q3

REPORT INFORMATION
  Report Type: Spontaneous
  Country: FR (occurrence: FR)
  Receive Date: 20141009
  Receipt Date: 20190723
  Transmission Date: 20191004
  Serious: Yes (Congenital Anomaly, Other)
  Sender: FDA-Public Use
  Company Number: FR-ABBVIE-12P-056-0992480-00

PATIENT
  Age: 2 Day
  Sex: Female
  Weight: 3.3 kg

DRUGS (1)
  1. DEPAKINE [Suspect]
     Active Substance: VALPROATE SODIUM
     Indication: MATERNAL EXPOSURE TIMING UNSPECIFIED
     Route: 064
     Dates: start: 199810, end: 19990705

REACTIONS (23)
  - Disturbance in social behaviour [Unknown]
  - Psychomotor skills impaired [Unknown]
  - Dysgraphia [Unknown]
  - Tremor [Recovered/Resolved]
  - Hypoacusis [Recovered/Resolved]
  - Dysmorphism [Recovered/Resolved]
  - Foetal exposure during pregnancy [Unknown]
  - Balance disorder [Unknown]
  - Ear disorder [Unknown]
  - Sleep disorder [Unknown]
  - Spinal disorder [Recovered/Resolved]
  - Exposure via breast milk [Unknown]
  - Mobility decreased [Unknown]
  - Dyspraxia [Not Recovered/Not Resolved]
  - Pectus excavatum [Unknown]
  - Sluggishness [Unknown]
  - Tooth disorder [Unknown]
  - Fatigue [Unknown]
  - Hypertonia [Recovered/Resolved]
  - Ear infection [Recovered/Resolved]
  - Visual impairment [Unknown]
  - Deafness bilateral [Unknown]
  - Psychiatric symptom [Unknown]

NARRATIVE: CASE EVENT DATE: 19990707
